FAERS Safety Report 8182677-0 (Version None)
Quarter: 2012Q1

REPORT INFORMATION
  Report Type: 
  Country: None (occurrence: None)
  Receive Date: 20120305
  Receipt Date: 20120227
  Transmission Date: 20120608
  Serious: No
  Sender: FDA-Public Use
  Company Number: US-PFIZER INC-2012041555

PATIENT
  Sex: Female
  Weight: 70.7 kg

DRUGS (8)
  1. LORTAB [Suspect]
     Indication: SPONDYLITIS
     Dosage: 7.5 MG, DAILY
     Route: 048
     Dates: end: 20120211
  2. LYRICA [Suspect]
     Dosage: 75 MG, 2X/DAY
     Route: 048
     Dates: start: 20120201
  3. LYRICA [Suspect]
     Dosage: 75 MG, DAILY
     Route: 048
     Dates: start: 20120201
  4. LORTAB [Suspect]
     Indication: PAIN IN EXTREMITY
     Dosage: 10 MG, DAILY
     Route: 048
  5. LYRICA [Suspect]
     Indication: NEUROPATHY PERIPHERAL
     Dosage: 75 MG, DAILY
     Route: 048
     Dates: start: 20111101, end: 20110101
  6. TRIAMTERENE AND HYDROCHLOROTHIAZIDE [Concomitant]
     Indication: HYPERTENSION
     Dosage: UNK, DAILY
     Route: 048
  7. MELOXICAM [Concomitant]
     Indication: SPONDYLITIS
     Dosage: 15 MG, DAILY
  8. LEVOTHYROXINE [Concomitant]
     Indication: THYROID DISORDER
     Dosage: 50 MG, DAILY

REACTIONS (6)
  - DYSSTASIA [None]
  - GAIT DISTURBANCE [None]
  - FEELING DRUNK [None]
  - SEDATION [None]
  - FEELING ABNORMAL [None]
  - SOMNOLENCE [None]
